FAERS Safety Report 11243103 (Version 1)
Quarter: 2015Q3

REPORT INFORMATION
  Report Type: Spontaneous
  Country: US (occurrence: US)
  Receive Date: 20150707
  Receipt Date: 20150707
  Transmission Date: 20151125
  Serious: No
  Sender: FDA-Public Use
  Company Number: US-009507513-1507USA000333

PATIENT
  Age: 61 Year
  Sex: Female

DRUGS (1)
  1. ZETIA [Suspect]
     Active Substance: EZETIMIBE
     Indication: BLOOD CHOLESTEROL INCREASED
     Dosage: 1 TABLET ONCE DAILY AT BEDTIME
     Route: 048
     Dates: start: 201506

REACTIONS (6)
  - Dysphonia [Unknown]
  - Tremor [Unknown]
  - Productive cough [Unknown]
  - Fatigue [Unknown]
  - Oropharyngeal pain [Unknown]
  - Diarrhoea [Unknown]

NARRATIVE: CASE EVENT DATE: 201506
